FAERS Safety Report 7360109-X (Version None)
Quarter: 2011Q1

REPORT INFORMATION
  Report Type: 
  Country: None (occurrence: None)
  Receive Date: 20110318
  Receipt Date: 20110310
  Transmission Date: 20110831
  Serious: Yes (Other)
  Sender: FDA-Public Use
  Company Number: US-BIOGENIDEC-2011BI009660

PATIENT
  Age: 40 Year
  Sex: Female
  Weight: 74 kg

DRUGS (4)
  1. DALFAMPRIDINE [Concomitant]
     Route: 048
     Dates: start: 20100710
  2. TYSABRI [Suspect]
     Indication: MULTIPLE SCLEROSIS
     Route: 042
     Dates: start: 20091106
  3. VYVANSE [Concomitant]
     Indication: MULTIPLE SCLEROSIS
  4. DESVENLAFAXINE [Concomitant]
     Route: 048
     Dates: start: 20101201

REACTIONS (2)
  - BLINDNESS [None]
  - MENINGIOMA [None]
